FAERS Safety Report 5019951-2 (Version None)
Quarter: 2006Q2

REPORT INFORMATION
  Report Type: 
  Country: None (occurrence: None)
  Receive Date: 20060601
  Receipt Date: 20060522
  Transmission Date: 20061013
  Serious: Yes (Life-Threatening, Hospitalization)
  Sender: FDA-Public Use
  Company Number: HQWYE417222MAY06

PATIENT
  Age: 25 Year
  Sex: Female

DRUGS (1)
  1. INDERAL [Suspect]
     Indication: STRESS
     Dosage: SINGLE DOSE; ORAL
     Route: 048
     Dates: start: 20060508, end: 20060508

REACTIONS (3)
  - CARDIO-RESPIRATORY ARREST [None]
  - COMA [None]
  - LUNG DISORDER [None]
